FAERS Safety Report 9124665 (Version 1)
Quarter: 2013Q1

REPORT INFORMATION
  Report Type: Spontaneous
  Country: KR (occurrence: KR)
  Receive Date: 20130116
  Receipt Date: 20130116
  Transmission Date: 20140127
  Serious: Yes (Hospitalization, Other)
  Sender: FDA-Public Use
  Company Number: KR-JNJFOC-20130102797

PATIENT
  Sex: 0

DRUGS (3)
  1. ACETAMINOPHEN [Suspect]
     Route: 065
  2. ACETAMINOPHEN [Suspect]
     Indication: PRODUCT USED FOR UNKNOWN INDICATION
     Route: 065
  3. AN UNKNOWN MEDICATION [Concomitant]

REACTIONS (27)
  - Skin disorder [Unknown]
  - Gastrointestinal disorder [Unknown]
  - Psychiatric symptom [Unknown]
  - Rash [None]
  - Pruritus [None]
  - Urticaria [None]
  - Angioedema [None]
  - Stevens-Johnson syndrome [None]
  - Dizziness [None]
  - Headache [None]
  - Syncope [None]
  - Somnolence [None]
  - Tremor [None]
  - Drug abuse [None]
  - Convulsion [None]
  - Sensory disturbance [None]
  - Extrapyramidal disorder [None]
  - Insomnia [None]
  - Parkinsonism [None]
  - Convulsion [None]
  - Vomiting [None]
  - Constipation [None]
  - Abdominal distension [None]
  - Abdominal pain [None]
  - Diarrhoea [None]
  - Haematochezia [None]
  - Nausea [None]
